FAERS Safety Report 7754197-6 (Version None)
Quarter: 2011Q3

REPORT INFORMATION
  Report Type: 
  Country: None (occurrence: None)
  Receive Date: 20110915
  Receipt Date: 20110728
  Transmission Date: 20111222
  Serious: Yes (Other)
  Sender: FDA-Public Use
  Company Number: PHHY2011JP62078

PATIENT
  Age: 75 Year
  Sex: Male

DRUGS (2)
  1. TEGRETOL [Suspect]
     Indication: EPILEPSY
     Dosage: 600 MG, DAILY
     Route: 048
  2. TEGRETOL [Suspect]
     Dosage: 200 MG, DAILY
     Route: 048

REACTIONS (3)
  - EPIDIDYMITIS [None]
  - RENAL IMPAIRMENT [None]
  - ANTICONVULSANT DRUG LEVEL INCREASED [None]
